FAERS Safety Report 6535190-8 (Version None)
Quarter: 2010Q1

REPORT INFORMATION
  Report Type: 
  Country: None (occurrence: None)
  Receive Date: 20100113
  Receipt Date: 20100107
  Transmission Date: 20100710
  Serious: Yes (Life-Threatening)
  Sender: FDA-Public Use
  Company Number: US-JNJFOC-20100102067

PATIENT
  Age: 78 Year
  Sex: Female

DRUGS (4)
  1. ULTRAM [Suspect]
     Indication: INTENTIONAL DRUG MISUSE
     Route: 065
  2. AMITRIPTYLINE HCL [Suspect]
     Indication: INTENTIONAL DRUG MISUSE
  3. OXYCONTIN [Suspect]
     Indication: INTENTIONAL DRUG MISUSE
  4. BENZODIAZEPINE NOS [Concomitant]

REACTIONS (8)
  - APNOEA [None]
  - ATRIOVENTRICULAR BLOCK FIRST DEGREE [None]
  - BUNDLE BRANCH BLOCK [None]
  - ELECTROCARDIOGRAM ST SEGMENT DEPRESSION [None]
  - INTENTIONAL DRUG MISUSE [None]
  - INTENTIONAL OVERDOSE [None]
  - SOMNOLENCE [None]
  - SPEECH DISORDER [None]
